FAERS Safety Report 5812558-6 (Version None)
Quarter: 2008Q3

REPORT INFORMATION
  Report Type: 
  Country: None (occurrence: None)
  Receive Date: 20080717
  Receipt Date: 20080708
  Transmission Date: 20090109
  Serious: Yes (Other)
  Sender: FDA-Public Use
  Company Number: PHHY2008BR13558

PATIENT
  Age: 42 Year
  Sex: Male
  Weight: 63 kg

DRUGS (1)
  1. CODATEN [Suspect]
     Indication: RIB FRACTURE
     Dosage: 1 DF, TID
     Route: 048
     Dates: start: 20080705

REACTIONS (1)
  - URINARY RETENTION [None]
